FAERS Safety Report 7324090-1 (Version None)
Quarter: 2011Q1

REPORT INFORMATION
  Report Type: 
  Country: None (occurrence: None)
  Receive Date: 20110301
  Receipt Date: 20110216
  Transmission Date: 20110831
  Serious: Yes (Hospitalization, Other)
  Sender: FDA-Public Use
  Company Number: FR-TEVA-265609ISR

PATIENT
  Sex: Male
  Weight: 49.2 kg

DRUGS (10)
  1. LENALIDOMIDE [Suspect]
     Route: 048
  2. METOCLOPRAMIDE HCL [Concomitant]
  3. SMECTITE [Concomitant]
  4. FERROUS SULFATE TAB [Concomitant]
     Indication: ANAEMIA
     Route: 048
  5. ACETYLSALICYLATE LYSINE [Concomitant]
  6. LENALIDOMIDE [Suspect]
     Indication: MULTIPLE MYELOMA
     Route: 048
     Dates: start: 20100121, end: 20100424
  7. ZOLPIDEM [Concomitant]
  8. DEXAMETHASONE [Suspect]
     Indication: MULTIPLE MYELOMA
     Dates: start: 20100121, end: 20100424
  9. BETAHISTINE HYDROCHLORIDE [Concomitant]
     Indication: DIZZINESS
  10. LOPERAMIDE [Concomitant]
     Indication: DIARRHOEA

REACTIONS (4)
  - ESCHERICHIA URINARY TRACT INFECTION [None]
  - HAEMODIALYSIS [None]
  - RENAL FAILURE [None]
  - ABDOMINAL PAIN UPPER [None]
